FAERS Safety Report 7199182-0 (Version None)
Quarter: 2010Q4

REPORT INFORMATION
  Report Type: 
  Country: None (occurrence: None)
  Receive Date: 20101215
  Receipt Date: 20101129
  Transmission Date: 20110411
  Serious: Yes (Hospitalization)
  Sender: FDA-Public Use
  Company Number: VAL_00475_2010

PATIENT
  Age: 85 Year
  Sex: Female

DRUGS (5)
  1. ROCALTROL [Suspect]
     Indication: HYPOPARATHYROIDISM
     Dosage: 1.5 UG QD, ORAL
     Route: 048
  2. GLYCYRRHIZA GLABRA (GLYCYRRHIZA GLABRA) [Suspect]
     Indication: HYPOPARATHYROIDISM SECONDARY
     Dosage: DF, ORAL
     Route: 048
     Dates: start: 20091101
  3. THYRADIN S [Concomitant]
  4. CALCIUM LACTATE [Concomitant]
  5. TSUKUSHI AM [Concomitant]

REACTIONS (4)
  - ALTERED STATE OF CONSCIOUSNESS [None]
  - HYPERCALCAEMIA [None]
  - RENAL IMPAIRMENT [None]
  - TRANSIENT ISCHAEMIC ATTACK [None]
